FAERS Safety Report 4743917-0 (Version None)
Quarter: 2005Q3

REPORT INFORMATION
  Report Type: 
  Country: None (occurrence: None)
  Receive Date: 20050812
  Receipt Date: 20050314
  Transmission Date: 20060218
  Serious: Yes (Death)
  Sender: FDA-Public Use
  Company Number: US-ROCHE-398731

PATIENT
  Age: 52 Year
  Sex: Male
  Weight: 65.8 kg

DRUGS (8)
  1. PEGASYS [Suspect]
     Route: 058
     Dates: start: 20050105, end: 20050202
  2. PEGASYS [Suspect]
     Route: 058
     Dates: start: 20050216
  3. PEGASYS [Suspect]
     Route: 058
     Dates: start: 20050413, end: 20050420
  4. PEGASYS [Suspect]
     Route: 058
     Dates: start: 20050427, end: 20050714
  5. COPEGUS [Suspect]
     Dosage: DOSING REGIMEN REPORTED AS: 3 AM 2 PM
     Route: 048
     Dates: start: 20050105, end: 20050202
  6. COPEGUS [Suspect]
     Route: 048
     Dates: start: 20050216, end: 20050714
  7. PROTONIX [Concomitant]
     Route: 065
  8. ZOLOFT [Concomitant]
     Indication: DEPRESSION
     Route: 065

REACTIONS (21)
  - ABDOMINAL DISTENSION [None]
  - ABDOMINAL PAIN [None]
  - ANAEMIA [None]
  - ASTHENIA [None]
  - BACK PAIN [None]
  - COLONIC POLYP [None]
  - DISTURBANCE IN ATTENTION [None]
  - DRY THROAT [None]
  - EPISTAXIS [None]
  - FATIGUE [None]
  - HEPATIC NEOPLASM MALIGNANT [None]
  - HYPERSOMNIA [None]
  - PAIN [None]
  - PHARYNGOLARYNGEAL PAIN [None]
  - PLATELET COUNT DECREASED [None]
  - PNEUMONIA [None]
  - PYREXIA [None]
  - TESTICULAR SWELLING [None]
  - URINARY TRACT INFECTION [None]
  - WEIGHT INCREASED [None]
  - WHITE BLOOD CELL COUNT DECREASED [None]
